FAERS Safety Report 7757319-6 (Version None)
Quarter: 2011Q3

REPORT INFORMATION
  Report Type: 
  Country: None (occurrence: None)
  Receive Date: 20110916
  Receipt Date: 20110906
  Transmission Date: 20111222
  Serious: Yes (Hospitalization)
  Sender: FDA-Public Use
  Company Number: CA-JNJFOC-20110903173

PATIENT
  Sex: Male
  Weight: 135 kg

DRUGS (1)
  1. REMICADE [Suspect]
     Indication: PSORIASIS
     Dosage: RECEIVED 4 DOSES TOTAL
     Route: 042
     Dates: start: 20110506, end: 20110811

REACTIONS (2)
  - HEPATITIS [None]
  - PLEURITIC PAIN [None]
